FAERS Safety Report 5251075-1 (Version None)
Quarter: 2007Q1

REPORT INFORMATION
  Report Type: 
  Country: None (occurrence: None)
  Receive Date: 20070228
  Receipt Date: 20061010
  Transmission Date: 20070707
  Serious: No
  Sender: FDA-Public Use
  Company Number: US-GLAXOSMITHKLINE-A0617459A

PATIENT
  Age: 53 Year
  Sex: Female
  Weight: 69.5 kg

DRUGS (2)
  1. LAMICTAL [Suspect]
     Indication: BIPOLAR DISORDER
     Dosage: 100MG TWICE PER DAY
     Route: 048
  2. BUPROPION HCL [Concomitant]
     Indication: BIPOLAR DISORDER
     Dosage: 200MG IN THE MORNING
     Route: 048
     Dates: start: 20060501

REACTIONS (2)
  - ARTHRALGIA [None]
  - MYALGIA [None]
